FAERS Safety Report 7920418-X (Version None)
Quarter: 2011Q4

REPORT INFORMATION
  Report Type: 
  Country: None (occurrence: None)
  Receive Date: 20111117
  Receipt Date: 20111107
  Transmission Date: 20120403
  Serious: Yes (Other)
  Sender: FDA-Public Use
  Company Number: PHHY2011JP95240

PATIENT
  Age: 25 Year
  Sex: Female

DRUGS (1)
  1. CYCLOSPORINE [Suspect]
     Indication: PROPHYLAXIS AGAINST GRAFT VERSUS HOST DISEASE

REACTIONS (15)
  - HEPATIC FUNCTION ABNORMAL [None]
  - FALL [None]
  - TOXIC ENCEPHALOPATHY [None]
  - ANXIETY [None]
  - SEDATION [None]
  - TOXICITY TO VARIOUS AGENTS [None]
  - HAEMOCHROMATOSIS [None]
  - MENTAL STATUS CHANGES [None]
  - NEUROTOXICITY [None]
  - SUICIDAL IDEATION [None]
  - INSOMNIA [None]
  - FACIAL PARESIS [None]
  - PSYCHIATRIC SYMPTOM [None]
  - CEREBRAL ATROPHY [None]
  - DEPRESSED LEVEL OF CONSCIOUSNESS [None]
